FAERS Safety Report 4648940-2 (Version None)
Quarter: 2005Q2

REPORT INFORMATION
  Report Type: 
  Country: None (occurrence: None)
  Receive Date: 20050427
  Receipt Date: 20050414
  Transmission Date: 20051028
  Serious: Yes (Hospitalization, Other)
  Sender: FDA-Public Use
  Company Number: 2005059868

PATIENT
  Age: 76 Year
  Sex: Female
  Weight: 77.5651 kg

DRUGS (8)
  1. BEXTRA [Suspect]
     Indication: ARTHRITIS
     Dosage: 20 MG (20 MG, 1 IN 1 D), ORAL
     Route: 048
     Dates: start: 20040401
  2. OMEPRAZOLE [Concomitant]
  3. THYROID TAB [Concomitant]
  4. ASCORBIC ACID/COPPER/RETINOL/TOCOPHEROL/ZINC (ASCORBIC ACID, COPPER, R [Concomitant]
  5. CENTRUM SILVER (ASCORBIC ACID, CALCIUM, MINERALS NOS, RETINOL, TOCOPHE [Concomitant]
  6. CALCIUM CARBONATE (CALCIUM CARBONATE) [Concomitant]
  7. ASPIRIN [Concomitant]
  8. DIPYRIDAMOLE [Concomitant]

REACTIONS (10)
  - BLOOD PRESSURE FLUCTUATION [None]
  - CEREBROVASCULAR ACCIDENT [None]
  - DIFFICULTY IN WALKING [None]
  - DRUG INEFFECTIVE [None]
  - FALSE POSITIVE LABORATORY RESULT [None]
  - PERIORBITAL HAEMATOMA [None]
  - RASH PRURITIC [None]
  - SKIN ULCER HAEMORRHAGE [None]
  - THROMBOSIS [None]
  - TRANSIENT ISCHAEMIC ATTACK [None]
